FAERS Safety Report 11064340 (Version 1)
Quarter: 2015Q2

REPORT INFORMATION
  Report Type: Spontaneous
  Country: US (occurrence: US)
  Receive Date: 20150424
  Receipt Date: 20150424
  Transmission Date: 20150821
  Serious: No
  Sender: FDA-Public Use
  Company Number: US-ASTRAZENECA-2015SE35549

PATIENT
  Age: 69 Year
  Sex: Male

DRUGS (1)
  1. PRILOSEC OTC [Suspect]
     Active Substance: OMEPRAZOLE MAGNESIUM
     Indication: DYSPEPSIA
     Dosage: 1 TABLET IN THE MORNING PRIOR TO BREAKFAST 1 TABLET DAILY FOR 13 DAYS
     Route: 048
     Dates: start: 20150326, end: 20150408

REACTIONS (4)
  - Blood pressure increased [Recovered/Resolved]
  - Drug ineffective [Unknown]
  - Hypertension [Recovered/Resolved]
  - Abdominal pain upper [Recovered/Resolved]
